FAERS Safety Report 4864916-4 (Version None)
Quarter: 2005Q4

REPORT INFORMATION
  Report Type: 
  Country: None (occurrence: None)
  Receive Date: 20051201
  Receipt Date: 20050729
  Transmission Date: 20060501
  Serious: No
  Sender: FDA-Public Use
  Company Number: 2005PV000709

PATIENT
  Age: 73 Year
  Sex: Female
  Weight: 78.9259 kg

DRUGS (7)
  1. BYETTA [Suspect]
     Indication: DIABETES MELLITUS NON-INSULIN-DEPENDENT
     Dosage: 5 MCG; BID; SC
     Route: 058
     Dates: start: 20050727, end: 20050729
  2. GLUCOPHAGE XR [Concomitant]
  3. GLYBURIDE [Concomitant]
  4. ACCUPRIL [Concomitant]
  5. PREACID [Concomitant]
  6. CLARINEX [Concomitant]
  7. HYDROCHLOROTHIAZIDE [Concomitant]

REACTIONS (2)
  - INJECTION [None]
  - INJECTION SITE BRUISING [None]
